FAERS Safety Report 19797877 (Version 1)
Quarter: 2021Q3

REPORT INFORMATION
  Report Type: Spontaneous
  Country: SG (occurrence: SG)
  Receive Date: 20210907
  Receipt Date: 20210907
  Transmission Date: 20211014
  Serious: Yes (Hospitalization, Other)
  Sender: FDA-Public Use
  Company Number: SG-BAYER-2021-205231

PATIENT
  Age: 25 Year
  Sex: Female
  Weight: 53.5 kg

DRUGS (5)
  1. PARACETAMOL [Interacting]
     Active Substance: ACETAMINOPHEN
     Dosage: 20 DF, ONCE
  2. PREGABALIN. [Suspect]
     Active Substance: PREGABALIN
     Dosage: 14 DF, ONCE
  3. HALOPERIDOL LACTATE. [Interacting]
     Active Substance: HALOPERIDOL LACTATE
     Indication: AGITATION
     Dosage: 5 MG
     Route: 030
  4. NAPROXEN SODIUM HIGH DOSE (} 220 MG) [Suspect]
     Active Substance: NAPROXEN SODIUM
     Dosage: 20 DF, ONCE ((5,500 MG))
  5. HALOPERIDOL LACTATE. [Interacting]
     Active Substance: HALOPERIDOL LACTATE
     Indication: AGITATION
     Route: 030

REACTIONS (7)
  - Dystonia [Recovered/Resolved]
  - Analgesic drug level increased [Recovered/Resolved]
  - Intentional overdose [Recovered/Resolved]
  - Oculogyric crisis [Recovered/Resolved]
  - Drug interaction [Recovered/Resolved]
  - Torticollis [Recovered/Resolved]
  - Somnolence [Recovered/Resolved]
